FAERS Safety Report 8053810-6 (Version None)
Quarter: 2011Q4

REPORT INFORMATION
  Report Type: 
  Country: None (occurrence: None)
  Receive Date: 20111213
  Receipt Date: 20110926
  Transmission Date: 20120403
  Serious: No
  Sender: FDA-Public Use
  Company Number: 2011SP045480

PATIENT
  Age: 58 Year
  Sex: Female

DRUGS (1)
  1. SAPHRIS [Suspect]
     Indication: BIPOLAR DISORDER
     Dates: end: 20110926

REACTIONS (2)
  - MUSCULOSKELETAL STIFFNESS [None]
  - VISION BLURRED [None]
